FAERS Safety Report 16569245 (Version 4)
Quarter: 2021Q1

REPORT INFORMATION
  Report Type: Report from Study
  Country: US (occurrence: US)
  Receive Date: 20190714
  Receipt Date: 20210112
  Transmission Date: 20210419
  Serious: Yes (Hospitalization, Other)
  Sender: FDA-Public Use
  Company Number: US-BIOGEN-2019BI00756985

PATIENT
  Sex: Female

DRUGS (2)
  1. TYSABRI [Suspect]
     Active Substance: NATALIZUMAB
     Route: 065
     Dates: start: 20130109
  2. TYSABRI [Suspect]
     Active Substance: NATALIZUMAB
     Indication: MULTIPLE SCLEROSIS
     Dosage: INFUSED OVER 1 HOUR
     Route: 042
     Dates: start: 20130109, end: 201904

REACTIONS (6)
  - Hypertension [Unknown]
  - Excessive skin [Not Recovered/Not Resolved]
  - Overweight [Unknown]
  - Limb discomfort [Not Recovered/Not Resolved]
  - Rash [Recovered/Resolved with Sequelae]
  - Multiple sclerosis [Not Recovered/Not Resolved]
